FAERS Safety Report 23257458 (Version 1)
Quarter: 2023Q4

REPORT INFORMATION
  Report Type: Spontaneous
  Country: US (occurrence: None)
  Receive Date: 20231204
  Receipt Date: 20231204
  Transmission Date: 20240109
  Serious: Yes (Hospitalization, Other)
  Sender: FDA-Public Use
  Company Number: US-Unichem Pharmaceuticals (USA) Inc-UCM202311-001488

PATIENT
  Age: 73 Year
  Sex: Female

DRUGS (1)
  1. METFORMIN HYDROCHLORIDE [Suspect]
     Active Substance: METFORMIN HYDROCHLORIDE
     Indication: Type 2 diabetes mellitus
     Dosage: UNKNOWN

REACTIONS (6)
  - Acute kidney injury [Recovered/Resolved]
  - Respiratory failure [Recovered/Resolved]
  - Multiple organ dysfunction syndrome [Recovered/Resolved]
  - Septic shock [Recovered/Resolved]
  - Hypovolaemic shock [Recovered/Resolved]
  - Lactic acidosis [Recovered/Resolved]
